FAERS Safety Report 5792869-3 (Version None)
Quarter: 2008Q2

REPORT INFORMATION
  Report Type: 
  Country: None (occurrence: None)
  Receive Date: 20080627
  Receipt Date: 20080619
  Transmission Date: 20081010
  Serious: Yes (Other)
  Sender: FDA-Public Use
  Company Number: FR-BRISTOL-MYERS SQUIBB COMPANY-14234991

PATIENT
  Age: 64 Year
  Sex: Female

DRUGS (2)
  1. ORENCIA [Suspect]
     Indication: POLYARTHRITIS
     Dosage: 8 INFUSION OF ORENCIA
     Dates: start: 20071201
  2. RITUXIMAB [Concomitant]

REACTIONS (2)
  - IMMUNOGLOBULINS DECREASED [None]
  - UROSEPSIS [None]
